FAERS Safety Report 23193482 (Version 2)
Quarter: 2023Q4

REPORT INFORMATION
  Report Type: Spontaneous
  Country: US (occurrence: US)
  Receive Date: 20231116
  Receipt Date: 20231121
  Transmission Date: 20240110
  Serious: Yes (Other)
  Sender: FDA-Public Use
  Company Number: US-TAIHOP-2023-009542

PATIENT
  Age: 74 Year
  Sex: Female

DRUGS (1)
  1. LONSURF [Suspect]
     Active Substance: TIPIRACIL HYDROCHLORIDE\TRIFLURIDINE
     Indication: Colon cancer
     Dosage: CYCLE 1?FORM STRENGTH UNKNOWN
     Route: 048
     Dates: start: 20231030, end: 20231110

REACTIONS (10)
  - Haematemesis [Unknown]
  - Pollakiuria [Unknown]
  - Back pain [Unknown]
  - Cough [Unknown]
  - Hypersomnia [Unknown]
  - Lip ulceration [Unknown]
  - Asthenia [Unknown]
  - Decreased appetite [Unknown]
  - Product dose omission in error [Unknown]
  - White blood cell count decreased [Unknown]
